FAERS Safety Report 6673767-X (Version None)
Quarter: 2010Q2

REPORT INFORMATION
  Report Type: 
  Country: None (occurrence: None)
  Receive Date: 20100407
  Receipt Date: 20100331
  Transmission Date: 20101027
  Serious: Yes (Death, Hospitalization)
  Sender: FDA-Public Use
  Company Number: UTC-000962

PATIENT
  Sex: Male
  Weight: 130.2 kg

DRUGS (7)
  1. TYVASO [Suspect]
     Indication: PULMONARY ARTERIAL HYPERTENSION
     Dosage: 216 MCG (54 MCG, 4 IN 1 D)
     Route: 055
     Dates: start: 20091020, end: 20100301
  2. COUMADIN [Concomitant]
  3. REVATIO [Concomitant]
  4. AVELOX (MOXIFLOXACIN HLYDROCHLORIDE) [Concomitant]
  5. SINEMET [Concomitant]
  6. DYAZIDE [Concomitant]
  7. PEPCID [Concomitant]

REACTIONS (3)
  - EPISTAXIS [None]
  - HAEMATEMESIS [None]
  - PNEUMONIA [None]
